FAERS Safety Report 4736423-0 (Version None)
Quarter: 2005Q3

REPORT INFORMATION
  Report Type: 
  Country: None (occurrence: None)
  Receive Date: 20050802
  Receipt Date: 20050719
  Transmission Date: 20060218
  Serious: Yes (Hospitalization)
  Sender: FDA-Public Use
  Company Number: 8010836

PATIENT
  Age: 68 Year
  Sex: Female
  Weight: 95 kg

DRUGS (4)
  1. KEPPRA [Suspect]
     Indication: STATUS EPILEPTICUS
     Dosage: D PO
     Route: 048
     Dates: start: 20050501
  2. PROPOFOL [Concomitant]
  3. FRISIUM [Concomitant]
  4. MIDAZOLAM HCL [Concomitant]

REACTIONS (3)
  - CHOLESTASIS [None]
  - HEPATIC FAILURE [None]
  - MULTI-ORGAN FAILURE [None]
